FAERS Safety Report 5448561-8 (Version None)
Quarter: 2007Q3

REPORT INFORMATION
  Report Type: 
  Country: None (occurrence: None)
  Receive Date: 20070911
  Receipt Date: 20070904
  Transmission Date: 20080115
  Serious: Yes (Disabling, Other)
  Sender: FDA-Public Use
  Company Number: US-ELI_LILLY_AND_COMPANY-US200709000717

PATIENT
  Sex: Male

DRUGS (9)
  1. HUMALOG [Suspect]
     Indication: TYPE 1 DIABETES MELLITUS
     Dates: start: 20070601
  2. HUMALOG [Suspect]
  3. HUMULIN 70/30 [Suspect]
     Indication: TYPE 1 DIABETES MELLITUS
     Dosage: UNK, UNK
     Dates: end: 20020101
  4. LANTUS [Concomitant]
  5. AVAPRO [Concomitant]
  6. ISOSORBIDE DINITRATE [Concomitant]
  7. COREG [Concomitant]
  8. PLAVIX [Concomitant]
  9. AVANDAMET [Concomitant]

REACTIONS (5)
  - BLINDNESS [None]
  - BLOOD GLUCOSE INCREASED [None]
  - CATARACT [None]
  - VISION BLURRED [None]
  - VISUAL ACUITY REDUCED [None]
